FAERS Safety Report 8338937-3 (Version None)
Quarter: 2012Q2

REPORT INFORMATION
  Report Type: 
  Country: None (occurrence: None)
  Receive Date: 20120506
  Receipt Date: 20120423
  Transmission Date: 20120825
  Serious: Yes (Other)
  Sender: FDA-Public Use
  Company Number: CA-MYLANLABS-2012S1008729

PATIENT
  Age: 10 Year
  Sex: Male
  Weight: 44 kg

DRUGS (9)
  1. VALPROATE SODIUM [Concomitant]
     Route: 065
  2. FENTANYL CITRATE [Suspect]
     Indication: SURGERY
     Route: 065
  3. FLUVOXAMINE MALEATE [Concomitant]
     Route: 065
  4. MORPHINE [Suspect]
     Indication: SURGERY
     Route: 065
  5. CODEINE [Suspect]
     Indication: SURGERY
     Route: 065
  6. OLANZAPINE [Suspect]
     Indication: ACCIDENTAL EXPOSURE
     Route: 065
  7. PROPOFOL [Concomitant]
     Indication: SURGERY
     Route: 065
  8. ZIPRASIDONE HCL [Suspect]
     Route: 065
  9. METHYLPHENIDATE [Concomitant]
     Route: 065

REACTIONS (2)
  - AGITATION [None]
  - SEROTONIN SYNDROME [None]
